FAERS Safety Report 8143705-1 (Version None)
Quarter: 2012Q1

REPORT INFORMATION
  Report Type: 
  Country: None (occurrence: None)
  Receive Date: 20120103
  Receipt Date: 20111007
  Transmission Date: 20120608
  Serious: No
  Sender: FDA-Public Use
  Company Number: AE-2011-002134

PATIENT
  Age: 63 Year
  Sex: Female

DRUGS (5)
  1. CALCIUM CARBONATE [Concomitant]
  2. INCIVEK [Suspect]
     Dosage: 2250 MG (750 MG, 3 IN 1 D), ORAL
     Route: 048
     Dates: start: 20110927
  3. PEGINTERFERON (PEGINTERFERON ALFA-2A) [Concomitant]
  4. RIBAVIRIN [Concomitant]
  5. FISH OIL (FISH OIL) [Concomitant]

REACTIONS (3)
  - SWELLING [None]
  - PRURITUS [None]
  - RASH [None]
